FAERS Safety Report 6085142-X (Version None)
Quarter: 2009Q1

REPORT INFORMATION
  Report Type: 
  Country: None (occurrence: None)
  Receive Date: 20090220
  Receipt Date: 20090217
  Transmission Date: 20090719
  Serious: Yes (Hospitalization, Other)
  Sender: FDA-Public Use
  Company Number: AU-ASTRAZENECA-2009AP01254

PATIENT
  Age: 2 Day
  Sex: Male

DRUGS (1)
  1. SEROQUEL [Suspect]
     Route: 064

REACTIONS (6)
  - FEEDING DISORDER NEONATAL [None]
  - IRRITABILITY [None]
  - JAUNDICE [None]
  - JOINT STIFFNESS [None]
  - MUSCLE RIGIDITY [None]
  - WITHDRAWAL SYNDROME [None]
